FAERS Safety Report 8479750 (Version 5)
Quarter: 2015Q2

REPORT INFORMATION
  Report Type: Spontaneous
  Country: US (occurrence: None)
  Receive Date: 20120320
  Receipt Date: 20150507
  Transmission Date: 20150821
  Serious: Yes (Other)
  Sender: FDA-Public Use
  Company Number: CIP02002304

PATIENT
  Age: 79 Year
  Sex: Female
  Weight: 49.4 kg

DRUGS (10)
  1. ACTONEL [Suspect]
     Active Substance: RISEDRONATE SODIUM
     Indication: OSTEOPOROSIS
     Route: 048
     Dates: start: 2004, end: 20121229
  2. HYDROXYUREA. [Concomitant]
     Active Substance: HYDROXYUREA
  3. FLOVENT [Concomitant]
     Active Substance: FLUTICASONE PROPIONATE
  4. ACTONEL [Suspect]
     Active Substance: RISEDRONATE SODIUM
     Indication: OSTEOPOROSIS
     Route: 048
     Dates: start: 2002
  5. CENTRUM SILVER [Concomitant]
     Active Substance: VITAMINS
  6. BABY ASPIRIN [Concomitant]
     Active Substance: ASPIRIN
  7. PREDNISONE. [Concomitant]
     Active Substance: PREDNISONE
     Indication: OSTEOPOROSIS
  8. CALCIUM CITRATE [Concomitant]
     Active Substance: CALCIUM CITRATE
  9. PEPCID [Concomitant]
     Active Substance: FAMOTIDINE
  10. ZITHROMAX [Concomitant]
     Active Substance: AZITHROMYCIN DIHYDRATE

REACTIONS (8)
  - Essential thrombocythaemia [None]
  - Dyspepsia [None]
  - Eructation [None]
  - Oesophageal discomfort [None]
  - Abdominal discomfort [None]
  - Chest pain [None]
  - Nausea [None]
  - Blood calcium decreased [None]

NARRATIVE: CASE EVENT DATE: 20021028
